FAERS Safety Report 13738331 (Version 1)
Quarter: 2017Q3

REPORT INFORMATION
  Report Type: Spontaneous
  Country: US (occurrence: US)
  Receive Date: 20170710
  Receipt Date: 20170710
  Transmission Date: 20171127
  Serious: Yes (Hospitalization, Other)
  Sender: FDA-Public Use
  Company Number: US-ELI_LILLY_AND_COMPANY-US201608005521

PATIENT
  Age: 43 Year
  Sex: Female

DRUGS (4)
  1. CYMBALTA [Suspect]
     Active Substance: DULOXETINE HYDROCHLORIDE
     Dosage: 80 MG, DAILY
     Route: 065
  2. CYMBALTA [Suspect]
     Active Substance: DULOXETINE HYDROCHLORIDE
     Indication: ANXIETY
     Dosage: UNK UNK, UNKNOWN
     Route: 065
     Dates: start: 2012
  3. CYMBALTA [Suspect]
     Active Substance: DULOXETINE HYDROCHLORIDE
     Dosage: 20 MG, DAILY
     Route: 048
  4. CYMBALTA [Suspect]
     Active Substance: DULOXETINE HYDROCHLORIDE
     Dosage: 60 MG, DAILY
     Route: 048

REACTIONS (26)
  - Renal failure [Unknown]
  - Vomiting [Unknown]
  - Vitamin D deficiency [Recovering/Resolving]
  - Memory impairment [Unknown]
  - Weight increased [Unknown]
  - Hyperparathyroidism [Recovered/Resolved]
  - Haematuria [Unknown]
  - Hypercalcaemia [Recovered/Resolved]
  - Dizziness [Recovering/Resolving]
  - Headache [Unknown]
  - Nausea [Unknown]
  - Irritable bowel syndrome [Unknown]
  - Neoplasm [Unknown]
  - Abdominal pain [Unknown]
  - Hepatic steatosis [Unknown]
  - Pain [Unknown]
  - Affective disorder [Unknown]
  - Intentional product misuse [Unknown]
  - Nausea [Unknown]
  - Flatulence [Unknown]
  - Abdominal pain lower [Unknown]
  - Paraesthesia [Recovering/Resolving]
  - Abdominal distension [Unknown]
  - Fatigue [Unknown]
  - Diarrhoea [Unknown]
  - Drug withdrawal syndrome [Unknown]

NARRATIVE: CASE EVENT DATE: 2013
